APPROVED DRUG PRODUCT: DAPSONE
Active Ingredient: DAPSONE
Strength: 100MG
Dosage Form/Route: TABLET;ORAL
Application: A207165 | Product #001 | TE Code: AB
Applicant: RISING PHARMA HOLDINGS INC
Approved: May 8, 2019 | RLD: No | RS: No | Type: RX